FAERS Safety Report 6105826-4 (Version None)
Quarter: 2009Q1

REPORT INFORMATION
  Report Type: 
  Country: None (occurrence: None)
  Receive Date: 20090305
  Receipt Date: 20090305
  Transmission Date: 20090719
  Serious: Yes (Other)
  Sender: FDA-Public Use
  Company Number: None

PATIENT
  Age: 49 Year
  Sex: Female
  Weight: 69.8 kg

DRUGS (3)
  1. GAMUNEX [Suspect]
     Indication: BLOOD IMMUNOGLOBULIN G DECREASED
     Dosage: 25 GRAMS } ONLY REC'D 2.45 ML EVERY 4 WEEKS IV 1ST DOSE OF THIS PRODUCT
     Route: 042
  2. GAMUNEX [Suspect]
     Indication: IMMUNODEFICIENCY COMMON VARIABLE
     Dosage: 25 GRAMS } ONLY REC'D 2.45 ML EVERY 4 WEEKS IV 1ST DOSE OF THIS PRODUCT
     Route: 042
  3. GAMUNEX [Suspect]

REACTIONS (4)
  - CHILLS [None]
  - FORMICATION [None]
  - PRURITUS [None]
  - WHEEZING [None]
